FAERS Safety Report 15853088 (Version 1)
Quarter: 2019Q1

REPORT INFORMATION
  Report Type: Other
  Country: DE (occurrence: DE)
  Receive Date: 20190122
  Receipt Date: 20190122
  Transmission Date: 20190417
  Serious: Yes (Death, Life-Threatening, Hospitalization, Other)
  Sender: FDA-Public Use
  Company Number: DE-COVIS PHARMA B.V.-2019COV00039

PATIENT
  Age: 68 Year
  Sex: Female
  Weight: 53 kg

DRUGS (32)
  1. OMEPRAZOLE MAGNESIUM. [Suspect]
     Active Substance: OMEPRAZOLE MAGNESIUM
     Dosage: 80 MG, 1X/DAY
     Route: 048
  2. STALEVO [Suspect]
     Active Substance: CARBIDOPA\ENTACAPONE\LEVODOPA
     Dosage: 50 MG, 3X/DAY
     Route: 048
  3. EXELON [Suspect]
     Active Substance: RIVASTIGMINE TARTRATE
     Indication: PREMEDICATION
     Dosage: 6 MG, 1X/DAY
     Route: 048
  4. ERGENYL [Suspect]
     Active Substance: VALPROIC ACID
     Dosage: 300 MG, 1X/DAY
     Route: 048
     Dates: start: 20090111
  5. TRAMAL [Concomitant]
     Active Substance: TRAMADOL
  6. DOMPERIDONE [Suspect]
     Active Substance: DOMPERIDONE
     Dosage: 10 MG, 2X/DAY
  7. NACOM [Suspect]
     Active Substance: CARBIDOPA\LEVODOPA
     Dosage: 200 MG, 1X/DAY
     Route: 048
  8. NACOM [Suspect]
     Active Substance: CARBIDOPA\LEVODOPA
     Dosage: 250 MG, 1X/DAY
     Route: 048
  9. OMEPRAZOLE MAGNESIUM. [Suspect]
     Active Substance: OMEPRAZOLE MAGNESIUM
     Indication: PREMEDICATION
     Dosage: 40 MG, 1X/DAY
     Route: 048
     Dates: start: 200901
  10. EXELON [Suspect]
     Active Substance: RIVASTIGMINE TARTRATE
     Indication: PARKINSON^S DISEASE
     Dosage: 6 MG, 1X/DAY
     Route: 048
  11. L DOPA [Suspect]
     Active Substance: LEVODOPA
     Indication: PREMEDICATION
     Dosage: 93.75 MG, 1X/DAY
  12. STALEVO [Suspect]
     Active Substance: CARBIDOPA\ENTACAPONE\LEVODOPA
     Dosage: 600 MG, 1X/DAY
     Route: 048
  13. STALEVO [Suspect]
     Active Substance: CARBIDOPA\ENTACAPONE\LEVODOPA
     Dosage: DAILY
  14. CLOZAPINE. [Suspect]
     Active Substance: CLOZAPINE
     Dosage: 225 MG, 1X/DAY
     Route: 048
     Dates: start: 20090111
  15. DOMPERIDONE [Suspect]
     Active Substance: DOMPERIDONE
     Dosage: 10 MG, 1X/DAY
  16. ERGENYL [Suspect]
     Active Substance: VALPROIC ACID
     Dosage: 600 MG, 1X/DAY
     Route: 048
     Dates: start: 200901
  17. DISTRANEURIN [Suspect]
     Active Substance: CLOMETHIAZOLE
     Indication: PREMEDICATION
     Dosage: UNK, 1X/DAY
     Route: 048
  18. DOMPERIDONE [Suspect]
     Active Substance: DOMPERIDONE
     Dosage: 20 MG, 1X/DAY
  19. PIPAMPERONE [Suspect]
     Active Substance: PIPAMPERONE
     Indication: PREMEDICATION
     Dosage: 40 MG, 1X/DAY
  20. ERGENYL [Suspect]
     Active Substance: VALPROIC ACID
     Dosage: 300 MG, 1X/DAY
     Route: 048
  21. CARBIDOPA. [Suspect]
     Active Substance: CARBIDOPA
     Dosage: 200 MG, 1X/DAY
     Route: 048
  22. DISTRANEURIN [Suspect]
     Active Substance: CLOMETHIAZOLE
     Dosage: UNK, 1X/DAY
     Route: 048
  23. LACTULOSE. [Concomitant]
     Active Substance: LACTULOSE
     Dosage: 20 MG, 1X/DAY
  24. NOVAMINSULFON [Concomitant]
     Active Substance: METAMIZOLE
     Dosage: 20 DROP, 4X/DAY
  25. KALIUM [Concomitant]
     Active Substance: POTASSIUM CHLORIDE
  26. CLOZAPINE. [Suspect]
     Active Substance: CLOZAPINE
     Dosage: (0.5 TABLET AT 7+9+12+14+19), EVERY 3 WEEKS
     Route: 048
  27. CLOZAPINE. [Suspect]
     Active Substance: CLOZAPINE
     Dosage: 62.5 MG, 1X/DAY
     Route: 048
     Dates: start: 200901
  28. DISTRANEURIN [Suspect]
     Active Substance: CLOMETHIAZOLE
     Dosage: UNK
     Route: 048
     Dates: start: 200901
  29. NACOM [Suspect]
     Active Substance: CARBIDOPA\LEVODOPA
     Dosage: 25 MG, 3X/DAY
     Route: 048
  30. METOCLOPRAMIDE. [Concomitant]
     Active Substance: METOCLOPRAMIDE
  31. MOVICOL [Concomitant]
     Active Substance: POLYETHYLENE GLYCOL 3350\POTASSIUM CHLORIDE\SODIUM BICARBONATE\SODIUM CHLORIDE
     Dosage: 1 DF, 1X/DAY
  32. NEOSTIGMINE. [Concomitant]
     Active Substance: NEOSTIGMINE METHYLSULFATE

REACTIONS (13)
  - Subileus [Fatal]
  - Gastrointestinal sounds abnormal [Unknown]
  - Abdominal tenderness [Unknown]
  - White blood cell count increased [Unknown]
  - Abdominal pain [Unknown]
  - Nausea [Unknown]
  - Dementia [Unknown]
  - Vascular encephalopathy [Unknown]
  - Bladder disorder [Unknown]
  - Pancreatitis [Fatal]
  - Abdominal distension [Unknown]
  - Ileus [Fatal]
  - Faecaloma [Fatal]

NARRATIVE: CASE EVENT DATE: 2009
